FAERS Safety Report 9825607 (Version 1)
Quarter: 2013Q4

REPORT INFORMATION
  Report Type: Spontaneous
  Country: US (occurrence: None)
  Receive Date: 20131223
  Receipt Date: 20131223
  Transmission Date: 20140711
  Serious: Yes (Other)
  Sender: FDA-Public Use
  Company Number: 221339LEO

PATIENT
  Age: 56 Year
  Sex: Male

DRUGS (5)
  1. PICATO [Suspect]
     Indication: ACTINIC KERATOSIS
     Dosage: 1 IN 1 D, TOPICAL
     Route: 061
     Dates: start: 20130415, end: 20130417
  2. LUNESTA (ESZOPICLONE (1.5 MG) [Concomitant]
  3. TOVIAZ (FESOTERODINE FUMARATE) (40 MG) [Concomitant]
  4. VITAMIN B12 (CYANOCOBALAMIN) (TABLET) [Concomitant]
  5. BIOTIN (BIOTIN) (5000 MG) [Concomitant]

REACTIONS (7)
  - Application site pain [None]
  - Application site erythema [None]
  - Application site vesicles [None]
  - Application site discharge [None]
  - Application site swelling [None]
  - Application site pruritus [None]
  - Drug administration error [None]
